FAERS Safety Report 13654799 (Version 1)
Quarter: 2017Q2

REPORT INFORMATION
  Report Type: Spontaneous
  Country: US (occurrence: US)
  Receive Date: 20170614
  Receipt Date: 20170614
  Transmission Date: 20170830
  Serious: Yes (Other)
  Sender: FDA-Public Use
  Company Number: None

PATIENT
  Age: 67 Year
  Sex: Male

DRUGS (4)
  1. ASPIRIN. [Concomitant]
     Active Substance: ASPIRIN
  2. WARFARIN [Suspect]
     Active Substance: WARFARIN
     Indication: CEREBROVASCULAR ACCIDENT PROPHYLAXIS
     Route: 048
     Dates: start: 20170602, end: 20170614
  3. VALSARTAN-HCT [Concomitant]
  4. ATORVASTATIN [Concomitant]
     Active Substance: ATORVASTATIN

REACTIONS (7)
  - Mouth haemorrhage [None]
  - Faeces discoloured [None]
  - International normalised ratio increased [None]
  - Lethargy [None]
  - Product quality issue [None]
  - Dyspnoea [None]
  - Contusion [None]

NARRATIVE: CASE EVENT DATE: 20170614
